FAERS Safety Report 21187822 (Version 2)
Quarter: 2022Q4

REPORT INFORMATION
  Report Type: Report from Study
  Country: CA (occurrence: CA)
  Receive Date: 20220809
  Receipt Date: 20221014
  Transmission Date: 20230113
  Serious: Yes (Other)
  Sender: FDA-Public Use
  Company Number: CA-BEH-2022148193

PATIENT
  Sex: Female

DRUGS (1)
  1. HAEGARDA [Suspect]
     Active Substance: HUMAN C1-ESTERASE INHIBITOR
     Indication: Hereditary angioedema
     Dosage: UNK
     Route: 065
     Dates: start: 2018

REACTIONS (4)
  - Hereditary angioedema [Recovered/Resolved]
  - Pain [Recovered/Resolved]
  - No adverse event [Unknown]
  - Therapy interrupted [Unknown]
